FAERS Safety Report 19988304 (Version 6)
Quarter: 2021Q4

REPORT INFORMATION
  Report Type: Report from Study
  Country: US (occurrence: US)
  Receive Date: 20211022
  Receipt Date: 20211215
  Transmission Date: 20220303
  Serious: Yes (Other)
  Sender: FDA-Public Use
  Company Number: US-TAKEDA-2021TUS064589

PATIENT
  Age: 63 Year
  Sex: Male

DRUGS (2)
  1. RECOMBINATE [Suspect]
     Active Substance: ANTIHEMOPHILIC FACTOR, HUMAN RECOMBINANT
     Indication: Product used for unknown indication
     Dosage: 4320 INTERNATIONAL UNIT, QD
     Route: 042
  2. RECOMBINATE [Suspect]
     Active Substance: ANTIHEMOPHILIC FACTOR, HUMAN RECOMBINANT
     Dosage: 2700 INTERNATIONAL UNIT
     Route: 042

REACTIONS (9)
  - Hip arthroplasty [Unknown]
  - Muscle haemorrhage [Unknown]
  - Post procedural haemorrhage [Not Recovered/Not Resolved]
  - Underdose [Unknown]
  - Wrong technique in product usage process [Unknown]
  - Joint injury [Unknown]
  - Injection site irritation [Unknown]
  - Injection site pain [Unknown]
  - Injection site erythema [Unknown]

NARRATIVE: CASE EVENT DATE: 20211005
